FAERS Safety Report 7520010-5 (Version None)
Quarter: 2011Q2

REPORT INFORMATION
  Report Type: 
  Country: None (occurrence: None)
  Receive Date: 20110602
  Receipt Date: 20110527
  Transmission Date: 20111010
  Serious: Yes (Death)
  Sender: FDA-Public Use
  Company Number: PHHY2011US47166

PATIENT
  Sex: Male

DRUGS (9)
  1. TRAMADOL HCL [Concomitant]
     Dosage: 50 MG, UNK
     Route: 065
  2. VITAMIN B-12 [Concomitant]
     Route: 065
  3. ASPIRIN [Concomitant]
     Dosage: 81 MG, UNK
     Route: 065
  4. LOVAZA [Concomitant]
     Route: 065
  5. GLEEVEC [Suspect]
     Dosage: 400 MG, BID
     Route: 048
  6. AMANTADINE HCL [Concomitant]
     Dosage: 100 MG, UNK
     Route: 065
  7. GABAPENTIN [Concomitant]
     Dosage: 100 MG, UNK
     Route: 065
  8. LASIX [Concomitant]
     Dosage: 20 MG, UNK
     Route: 065
  9. TRIHEXYPHENIDYL HCL [Concomitant]
     Dosage: 2 MG, UNK

REACTIONS (2)
  - DEATH [None]
  - PAIN [None]
